FAERS Safety Report 7388596-1 (Version None)
Quarter: 2011Q2

REPORT INFORMATION
  Report Type: 
  Country: None (occurrence: None)
  Receive Date: 20110401
  Receipt Date: 20110321
  Transmission Date: 20111010
  Serious: Yes (Hospitalization)
  Sender: FDA-Public Use
  Company Number: US-BAYER-2011-025441

PATIENT
  Sex: Female

DRUGS (2)
  1. AVELOX [Suspect]
     Dosage: 400 MG, ONCE
     Route: 048
     Dates: start: 20110301, end: 20110301
  2. INSULIN [INSULIN] [Concomitant]
     Indication: TYPE 1 DIABETES MELLITUS

REACTIONS (1)
  - URTICARIA [None]
